FAERS Safety Report 9064755 (Version 3)
Quarter: 2013Q2

REPORT INFORMATION
  Report Type: Report from Study
  Country: IT (occurrence: IT)
  Receive Date: 20130130
  Receipt Date: 20130624
  Transmission Date: 20140414
  Serious: Yes (Death, Hospitalization)
  Sender: FDA-Public Use
  Company Number: IT-GILEAD-2012-0048771

PATIENT
  Age: 28 Year
  Sex: Female

DRUGS (3)
  1. AMBRISENTAN [Suspect]
     Indication: PULMONARY ARTERIAL HYPERTENSION
     Dosage: 10 MG, QD
     Route: 048
     Dates: start: 20040311
  2. SILDENAFIL [Concomitant]
  3. EPOPROSTENOL [Concomitant]

REACTIONS (1)
  - Cardiac failure [Fatal]
